FAERS Safety Report 11145937 (Version 1)
Quarter: 2015Q2

REPORT INFORMATION
  Report Type: Spontaneous
  Country: US (occurrence: US)
  Receive Date: 20150528
  Receipt Date: 20150528
  Transmission Date: 20150821
  Serious: Yes (Other)
  Sender: FDA-Public Use
  Company Number: US-GLAXOSMITHKLINE-US2015071979

PATIENT
  Age: 71 Year
  Sex: Male

DRUGS (13)
  1. ADVAIR DISKUS [Concomitant]
     Active Substance: FLUTICASONE PROPIONATE\SALMETEROL XINAFOATE
  2. ENALAPRIL [Concomitant]
     Active Substance: ENALAPRIL
  3. EPLERENONE. [Concomitant]
     Active Substance: EPLERENONE
  4. COUMADIN [Concomitant]
     Active Substance: WARFARIN SODIUM
  5. CALCIUM CARBONATE. [Concomitant]
     Active Substance: CALCIUM CARBONATE
  6. FISH OIL [Concomitant]
     Active Substance: FISH OIL
  7. FLOVENT [Suspect]
     Active Substance: FLUTICASONE PROPIONATE
     Indication: PRODUCT USED FOR UNKNOWN INDICATION
     Dosage: 1 PUFF(S), SINGLE
     Route: 055
     Dates: start: 20150526
  8. FLUTICASONE [Concomitant]
     Active Substance: FLUTICASONE\FLUTICASONE PROPIONATE
  9. BUMETANIDE. [Concomitant]
     Active Substance: BUMETANIDE
  10. TRAZODONE [Concomitant]
     Active Substance: TRAZODONE HYDROCHLORIDE
  11. NEURONTIN [Concomitant]
     Active Substance: GABAPENTIN
  12. METOPROLOL [Concomitant]
     Active Substance: METOPROLOL
  13. SINGULAIR [Concomitant]
     Active Substance: MONTELUKAST SODIUM

REACTIONS (5)
  - Respiratory distress [Recovered/Resolved]
  - Ill-defined disorder [Recovered/Resolved]
  - Chronic throat clearing [Not Recovered/Not Resolved]
  - Cough [Recovered/Resolved]
  - Expired product administered [Unknown]

NARRATIVE: CASE EVENT DATE: 20150526
